FAERS Safety Report 20846784 (Version 1)
Quarter: 2022Q2

REPORT INFORMATION
  Report Type: Spontaneous
  Country: FR (occurrence: FR)
  Receive Date: 20220519
  Receipt Date: 20220519
  Transmission Date: 20220721
  Serious: Yes (Hospitalization)
  Sender: FDA-Public Use
  Company Number: None

PATIENT
  Age: 97 Year
  Sex: Female
  Weight: 37.4 kg

DRUGS (2)
  1. OFLOXACIN [Interacting]
     Active Substance: OFLOXACIN
     Indication: Urinary tract infection
     Route: 048
     Dates: start: 20210722, end: 20210729
  2. WARFARIN SODIUM [Interacting]
     Active Substance: WARFARIN SODIUM
     Indication: Atrial fibrillation
     Dosage: 4 MILLIGRAM DAILY; 2MG/2/D, SCORED TABLET, STRENGTH: 2 MG
     Route: 048
     Dates: start: 20210727

REACTIONS (2)
  - Haematoma [Recovering/Resolving]
  - Drug interaction [Unknown]

NARRATIVE: CASE EVENT DATE: 20210801
